FAERS Safety Report 8459982-3 (Version None)
Quarter: 2012Q2

REPORT INFORMATION
  Report Type: 
  Country: None (occurrence: None)
  Receive Date: 20120622
  Receipt Date: 20120620
  Transmission Date: 20120825
  Serious: Yes (Death)
  Sender: FDA-Public Use
  Company Number: PHEH2012US012351

PATIENT
  Sex: Female
  Weight: 63 kg

DRUGS (3)
  1. RECLAST [Suspect]
     Route: 042
     Dates: start: 20110623
  2. RECLAST [Suspect]
     Route: 042
     Dates: start: 20090520
  3. RECLAST [Suspect]
     Route: 042
     Dates: start: 20100520

REACTIONS (1)
  - DEATH [None]
